FAERS Safety Report 20491300 (Version 1)
Quarter: 2022Q1

REPORT INFORMATION
  Report Type: Spontaneous
  Country: AU (occurrence: AU)
  Receive Date: 20220218
  Receipt Date: 20220218
  Transmission Date: 20220424
  Serious: Yes (Death, Other)
  Sender: FDA-Public Use
  Company Number: AU-GLAXOSMITHKLINE-AU2022APC029291

PATIENT
  Age: 77 Year
  Sex: Female

DRUGS (8)
  1. ACITRETIN [Suspect]
     Active Substance: ACITRETIN
     Indication: Pustular psoriasis
     Dosage: 20 MG, QD
     Route: 048
     Dates: start: 20190606, end: 20190622
  2. DAPSONE [Suspect]
     Active Substance: DAPSONE
     Indication: Pustular psoriasis
     Dosage: UNK
  3. COLCHICINE [Suspect]
     Active Substance: COLCHICINE
     Indication: Pustular psoriasis
     Dosage: UNK
  4. CYCLOSPORINE [Suspect]
     Active Substance: CYCLOSPORINE
     Indication: Pustular psoriasis
     Dosage: UNK
  5. METHOTREXATE [Suspect]
     Active Substance: METHOTREXATE
     Indication: Pustular psoriasis
     Dosage: UNK
  6. ADALIMUMAB [Suspect]
     Active Substance: ADALIMUMAB
     Indication: Pustular psoriasis
     Dosage: UNK
  7. INFLIXIMAB [Suspect]
     Active Substance: INFLIXIMAB
     Indication: Pustular psoriasis
     Dosage: UNK
  8. ETANERCEPT [Suspect]
     Active Substance: ETANERCEPT
     Indication: Pustular psoriasis
     Dosage: UNK

REACTIONS (3)
  - Death [Fatal]
  - Treatment failure [Unknown]
  - Product use in unapproved indication [Unknown]
